FAERS Safety Report 13085165 (Version 1)
Quarter: 2017Q1

REPORT INFORMATION
  Report Type: Spontaneous
  Country: US (occurrence: US)
  Receive Date: 20170104
  Receipt Date: 20170104
  Transmission Date: 20170428
  Serious: No
  Sender: FDA-Public Use
  Company Number: PHEH2017US000459

PATIENT
  Age: 63 Year
  Sex: Female

DRUGS (1)
  1. MEKINIST [Suspect]
     Active Substance: TRAMETINIB DIMETHYL SULFOXIDE
     Indication: LUNG NEOPLASM
     Dosage: 5 MG, QD
     Route: 048
     Dates: start: 20161203

REACTIONS (2)
  - Vitreous floaters [Unknown]
  - Product use issue [Unknown]

NARRATIVE: CASE EVENT DATE: 20161203
